FAERS Safety Report 24783427 (Version 1)
Quarter: 2024Q4

REPORT INFORMATION
  Report Type: Spontaneous
  Country: PT (occurrence: PT)
  Receive Date: 20241227
  Receipt Date: 20241227
  Transmission Date: 20250115
  Serious: Yes (Other)
  Sender: BAYER HEALTHCARE PHARMACEUTICALS INC.
  Company Number: PT-BAYER-2024A180361

PATIENT
  Sex: Female

DRUGS (1)
  1. FINERENONE [Suspect]
     Active Substance: FINERENONE
     Dosage: UNK
     Dates: start: 202311

REACTIONS (2)
  - Urine albumin/creatinine ratio increased [None]
  - Drug ineffective [None]

NARRATIVE: CASE EVENT DATE: 20241101
